FAERS Safety Report 5144880-3 (Version None)
Quarter: 2006Q4

REPORT INFORMATION
  Report Type: 
  Country: None (occurrence: None)
  Receive Date: 20061107
  Receipt Date: 20061025
  Transmission Date: 20070319
  Serious: Yes (Hospitalization)
  Sender: FDA-Public Use
  Company Number: ES-AMGEN-UK198142

PATIENT
  Sex: Male

DRUGS (1)
  1. PALIFERMIN [Suspect]
     Indication: MUCOSAL INFLAMMATION
     Route: 042
     Dates: start: 20061020, end: 20061022

REACTIONS (3)
  - BLOOD CULTURE POSITIVE [None]
  - CELLULITIS STAPHYLOCOCCAL [None]
  - CENTRAL LINE INFECTION [None]
